FAERS Safety Report 4638805-4 (Version None)
Quarter: 2005Q2

REPORT INFORMATION
  Report Type: 
  Country: None (occurrence: None)
  Receive Date: 20050418
  Receipt Date: 20050418
  Transmission Date: 20051028
  Serious: Yes (Life-Threatening, Hospitalization, Disabling)
  Sender: FDA-Public Use
  Company Number: None

PATIENT
  Age: 53 Year
  Sex: Male
  Weight: 136.0791 kg

DRUGS (1)
  1. ZITHROMAX [Suspect]
     Indication: INFLUENZA LIKE ILLNESS
     Dosage: 3 DAYS
     Dates: start: 20050210, end: 20050214

REACTIONS (6)
  - CHOLESTASIS [None]
  - DYSGEUSIA [None]
  - FATIGUE [None]
  - JAUNDICE [None]
  - PRURITUS [None]
  - WEIGHT DECREASED [None]
